FAERS Safety Report 6604099-3 (Version None)
Quarter: 2010Q1

REPORT INFORMATION
  Report Type: 
  Country: None (occurrence: None)
  Receive Date: 20100226
  Receipt Date: 20090521
  Transmission Date: 20100710
  Serious: No
  Sender: FDA-Public Use
  Company Number: A0785563A

PATIENT
  Age: 19 Year
  Sex: Female

DRUGS (3)
  1. LAMICTAL CD [Suspect]
     Indication: EPILEPSY
     Dosage: 200MG TWICE PER DAY
     Route: 048
     Dates: start: 20080501
  2. SEROQUEL [Concomitant]
  3. INDERAL [Concomitant]

REACTIONS (6)
  - DISTURBANCE IN ATTENTION [None]
  - DRY MOUTH [None]
  - PANIC ATTACK [None]
  - THINKING ABNORMAL [None]
  - TREMOR [None]
  - VERTIGO [None]
